FAERS Safety Report 14143418 (Version 1)
Quarter: 2017Q4

REPORT INFORMATION
  Report Type: Spontaneous
  Country: MX (occurrence: MX)
  Receive Date: 20171030
  Receipt Date: 20171030
  Transmission Date: 20180321
  Serious: Yes (Death)
  Sender: FDA-Public Use
  Company Number: MX-009507513-1710MEX014085

PATIENT
  Age: 18 Year
  Sex: Female

DRUGS (2)
  1. IMIPENEM AND CILASTATIN [Suspect]
     Active Substance: CILASTATIN SODIUM\IMIPENEM
     Indication: NOCARDIOSIS
     Dosage: 500 MG, EVERY 8 HOURS
  2. AMIKACIN [Concomitant]
     Active Substance: AMIKACIN
     Indication: NOCARDIOSIS
     Dosage: UNK

REACTIONS (2)
  - Lung disorder [Fatal]
  - Drug ineffective [Fatal]
